FAERS Safety Report 12334646 (Version 1)
Quarter: 2016Q2

REPORT INFORMATION
  Report Type: Spontaneous
  Country: AT (occurrence: AT)
  Receive Date: 20160504
  Receipt Date: 20160504
  Transmission Date: 20160815
  Serious: Yes (Hospitalization)
  Sender: FDA-Public Use
  Company Number: AT-INCYTE CORPORATION-2016IN002485

PATIENT
  Sex: Male

DRUGS (9)
  1. DEXA//DEXAMETHASONE [Concomitant]
     Indication: PRODUCT USED FOR UNKNOWN INDICATION
     Dosage: UNK
     Route: 065
  2. ANAKINRA [Concomitant]
     Active Substance: ANAKINRA
     Dosage: 15 MG, 4-5DAYS
     Route: 065
     Dates: start: 201507
  3. JAKAFI [Suspect]
     Active Substance: RUXOLITINIB
     Indication: AUTOINFLAMMATORY DISEASE
     Dosage: 2.5 MG, QD
     Route: 065
     Dates: start: 201603
  4. JAKAFI [Suspect]
     Active Substance: RUXOLITINIB
     Dosage: 5 MG, QD
     Route: 065
     Dates: end: 20160319
  5. RECTOPRED [Concomitant]
     Indication: PRODUCT USED FOR UNKNOWN INDICATION
     Dosage: 25 MG, UNK
     Route: 065
  6. FENISTIL [Concomitant]
     Active Substance: DIMETHINDENE
     Indication: PRODUCT USED FOR UNKNOWN INDICATION
     Dosage: 2-6 X 5 DROPS
     Route: 065
  7. EUSAPRIM [Concomitant]
     Indication: PRODUCT USED FOR UNKNOWN INDICATION
     Dosage: 2 X 2 ML
     Route: 065
  8. NEXIUM [Concomitant]
     Active Substance: ESOMEPRAZOLE MAGNESIUM
     Indication: PRODUCT USED FOR UNKNOWN INDICATION
     Dosage: UNK
     Route: 065
  9. ANAKINRA [Concomitant]
     Active Substance: ANAKINRA
     Indication: PRODUCT USED FOR UNKNOWN INDICATION
     Dosage: 10 MG, FOR 4 DAYS
     Route: 065
     Dates: start: 201507

REACTIONS (13)
  - Pruritus [Unknown]
  - Bone marrow failure [Unknown]
  - Liver disorder [Unknown]
  - Ascites [Recovering/Resolving]
  - Pyrexia [Unknown]
  - Haemoglobin decreased [Unknown]
  - Pain in extremity [Unknown]
  - Product use issue [Unknown]
  - Peripheral swelling [Unknown]
  - Rash [Unknown]
  - Erythema [Unknown]
  - Jaundice [Recovering/Resolving]
  - Increased appetite [Unknown]

NARRATIVE: CASE EVENT DATE: 20160311
